FAERS Safety Report 23778467 (Version 1)
Quarter: 2024Q2

REPORT INFORMATION
  Report Type: Spontaneous
  Country: KR (occurrence: KR)
  Receive Date: 20240424
  Receipt Date: 20240424
  Transmission Date: 20240715
  Serious: Yes (Other)
  Sender: FDA-Public Use
  Company Number: KR-TAKEDA-2024TUS036577

PATIENT
  Sex: Male
  Weight: 79 kg

DRUGS (2)
  1. PANTOPRAZOLE SODIUM [Suspect]
     Active Substance: PANTOPRAZOLE SODIUM
     Indication: Evidence based treatment
     Dosage: 1 DOSAGE FORM, QD
     Route: 065
     Dates: start: 20220731, end: 20220731
  2. FAMOTIDINE [Suspect]
     Active Substance: FAMOTIDINE
     Indication: Evidence based treatment
     Dosage: 1 DOSAGE FORM, Q12H
     Route: 065
     Dates: start: 20220731, end: 20220731

REACTIONS (6)
  - Anaphylactic reaction [Recovered/Resolved]
  - Pruritus [Recovered/Resolved]
  - Rash [Recovered/Resolved]
  - Angioedema [Recovered/Resolved]
  - Seizure [Recovered/Resolved]
  - Off label use [Unknown]

NARRATIVE: CASE EVENT DATE: 20220731
